FAERS Safety Report 18261251 (Version 1)
Quarter: 2020Q3

REPORT INFORMATION
  Report Type: Spontaneous
  Country: US (occurrence: US)
  Receive Date: 20200914
  Receipt Date: 20200914
  Transmission Date: 20201103
  Serious: Yes (Death, Hospitalization)
  Sender: FDA-Public Use
  Company Number: US-STRIDES ARCOLAB LIMITED-2020SP000550

PATIENT
  Age: 59 Year
  Sex: Female

DRUGS (2)
  1. TACROLIMUS. [Suspect]
     Active Substance: TACROLIMUS
     Indication: GRAFT VERSUS HOST DISEASE
     Dosage: UNK
     Route: 065
  2. TACROLIMUS. [Suspect]
     Active Substance: TACROLIMUS
     Indication: IMMUNOSUPPRESSANT DRUG THERAPY
     Dosage: UNK, DECREASED DOSE
     Route: 065

REACTIONS (7)
  - Epstein-Barr virus infection [Unknown]
  - Cough [Unknown]
  - Post transplant lymphoproliferative disorder [Fatal]
  - Rales [Unknown]
  - Respiratory failure [Unknown]
  - Dyspnoea [Unknown]
  - Pyrexia [Unknown]
